FAERS Safety Report 6925990-4 (Version None)
Quarter: 2010Q3

REPORT INFORMATION
  Report Type: 
  Country: None (occurrence: None)
  Receive Date: 20100816
  Receipt Date: 20100804
  Transmission Date: 20110219
  Serious: Yes (Hospitalization, Other)
  Sender: FDA-Public Use
  Company Number: US-PFIZER INC-2010074688

PATIENT
  Sex: Male
  Weight: 117.9 kg

DRUGS (11)
  1. SUTENT [Suspect]
     Indication: RENAL CELL CARCINOMA
     Dosage: 50 MG, 1X/DAY, CYCLE 4/2 WEEKS
     Route: 048
     Dates: start: 20100501, end: 20100805
  2. PANTOPRAZOLE [Concomitant]
     Indication: GASTROOESOPHAGEAL REFLUX DISEASE
     Dosage: 40 MG, 1X/DAY
     Route: 048
  3. PANTOPRAZOLE [Concomitant]
     Indication: DYSPEPSIA
  4. ALLEGRA [Concomitant]
     Indication: HYPERSENSITIVITY
     Dosage: 180 MG, 1X/DAY
     Route: 048
  5. LIPOFENE [Concomitant]
     Indication: BLOOD CHOLESTEROL DECREASED
     Dosage: 150 MG, 1X/DAY
  6. ISMO [Concomitant]
     Indication: CARDIOVASCULAR DISORDER
     Dosage: 20 MG, 1X/DAY
  7. HYOSCINE HYDROCHLORIDE [Concomitant]
     Dosage: 5 MG, 1X/DAY
  8. HYTRIN [Concomitant]
     Indication: HEART RATE IRREGULAR
     Dosage: 5 MG, 1X/DAY
  9. SIMVASTATIN [Concomitant]
     Indication: BLOOD CHOLESTEROL ABNORMAL
     Dosage: 10 MG, 1X/DAY
  10. GABAPENTIN [Concomitant]
     Indication: NEUROPATHY PERIPHERAL
     Dosage: 100 MG, 1X/DAY
  11. DIAZEPAM [Concomitant]
     Indication: SLEEP DISORDER
     Dosage: 2 MG, AS NEEDED

REACTIONS (9)
  - BLOOD MAGNESIUM DECREASED [None]
  - DEHYDRATION [None]
  - DIARRHOEA [None]
  - DYSPNOEA [None]
  - HAEMATEMESIS [None]
  - HYPERTENSION [None]
  - LOSS OF CONSCIOUSNESS [None]
  - MUSCLE SPASMS [None]
  - NAUSEA [None]
